FAERS Safety Report 13976506 (Version 1)
Quarter: 2017Q3

REPORT INFORMATION
  Report Type: Spontaneous
  Country: US (occurrence: US)
  Receive Date: 20170915
  Receipt Date: 20170915
  Transmission Date: 20171128
  Serious: No
  Sender: FDA-Public Use
  Company Number: US-LPDUSPRD-20170715

PATIENT
  Age: 79 Year
  Sex: Female
  Weight: 65.77 kg

DRUGS (1)
  1. INJECTAFER [Suspect]
     Active Substance: FERRIC CARBOXYMALTOSE
     Dosage: 1500 MG
     Route: 041
     Dates: start: 20170429, end: 20170506

REACTIONS (2)
  - Injection site discolouration [Not Recovered/Not Resolved]
  - Injection site swelling [Recovered/Resolved]
